FAERS Safety Report 12940885 (Version 6)
Quarter: 2018Q2

REPORT INFORMATION
  Report Type: Spontaneous
  Country: US (occurrence: US)
  Receive Date: 20161114
  Receipt Date: 20180509
  Transmission Date: 20180711
  Serious: Yes (Other)
  Sender: FDA-Public Use
  Company Number: US-ACTELION-A-US2016-145409

PATIENT
  Age: 58 Year
  Sex: Female
  Weight: 113.38 kg

DRUGS (6)
  1. BIAXIN [Concomitant]
     Active Substance: CLARITHROMYCIN
  2. ZANTAC [Concomitant]
     Active Substance: RANITIDINE HYDROCHLORIDE
     Dosage: 300 MG, UNK
  3. DIFLUCAN [Concomitant]
     Active Substance: FLUCONAZOLE
  4. UPTRAVI [Suspect]
     Active Substance: SELEXIPAG
     Indication: PULMONARY ARTERIAL HYPERTENSION
     Dosage: 1600 MCG, BID
     Route: 048
     Dates: start: 2015
  5. PROTONIX [Concomitant]
     Active Substance: PANTOPRAZOLE SODIUM
  6. COUMADIN [Concomitant]
     Active Substance: WARFARIN SODIUM

REACTIONS (6)
  - Stent placement [Unknown]
  - Immune system disorder [Unknown]
  - Gastrooesophageal reflux disease [Unknown]
  - Groin infection [Unknown]
  - Oesophageal candidiasis [Unknown]
  - Malaise [Unknown]

NARRATIVE: CASE EVENT DATE: 201605
